FAERS Safety Report 7943401 (Version 8)
Quarter: 2014Q3

REPORT INFORMATION
  Report Type: Spontaneous
  Country: FR (occurrence: None)
  Receive Date: 20110428
  Receipt Date: 20140819
  Transmission Date: 20150326
  Serious: Yes (Other)
  Sender: FDA-Public Use
  Company Number: JPI-P-003411

PATIENT
  Age: 38 Year
  Sex: Male
  Weight: 93 kg

DRUGS (3)
  1. XYREM [Suspect]
     Active Substance: SODIUM OXYBATE
     Indication: NARCOLEPSY
     Dosage: 4.5 GM (2.25 GM, 2 IN 1 D), ORAL
     Route: 048
     Dates: start: 20080223, end: 20080522
  2. SEROPLEX (ESCITALOPRAM OXALATE) [Concomitant]
     Active Substance: ESCITALOPRAM OXALATE
  3. MODAFINIL (MODAFINIL) [Concomitant]
     Active Substance: MODAFINIL

REACTIONS (23)
  - Incontinence [None]
  - Balance disorder [None]
  - Insomnia [None]
  - Accidental exposure to product [None]
  - Vomiting [None]
  - Disorientation [None]
  - Psychomotor hyperactivity [None]
  - Dizziness [None]
  - Hernia [None]
  - Somnambulism [None]
  - Incorrect dose administered [None]
  - Depression [None]
  - Weight decreased [None]
  - Bulimia nervosa [None]
  - Inguinal hernia [None]
  - Anxiety [None]
  - Headache [None]
  - Product quality issue [None]
  - Disturbance in attention [None]
  - Decreased appetite [None]
  - Confusional state [None]
  - Enuresis [None]
  - Nausea [None]

NARRATIVE: CASE EVENT DATE: 20080221
